FAERS Safety Report 7731960-9 (Version None)
Quarter: 2011Q3

REPORT INFORMATION
  Report Type: 
  Country: None (occurrence: None)
  Receive Date: 20110906
  Receipt Date: 20110718
  Transmission Date: 20111222
  Serious: No
  Sender: FDA-Public Use
  Company Number: US-AMGEN-USASP2011036579

PATIENT
  Sex: Female

DRUGS (3)
  1. XGEVA [Suspect]
     Indication: BREAST CANCER METASTATIC
     Dosage: 120 MG, Q4WK
  2. HERCEPTIN [Concomitant]
     Dosage: UNK
  3. TAMOXIFEN CITRATE [Concomitant]
     Dosage: UNK

REACTIONS (2)
  - STOMATITIS [None]
  - ORAL PAIN [None]
